FAERS Safety Report 8913274 (Version 2)
Quarter: 2012Q4

REPORT INFORMATION
  Report Type: 
  Country: RO (occurrence: RO)
  Receive Date: 20121119
  Receipt Date: 20121120
  Transmission Date: 20130627
  Serious: Yes (Hospitalization)
  Sender: FDA-Public Use
  Company Number: RO-UCBSA-071103

PATIENT
  Age: 53 Year
  Sex: Female
  Weight: 65 kg

DRUGS (8)
  1. VIMPAT [Suspect]
     Indication: EPILEPSY
     Dosage: DOSE TITRATED
     Route: 048
     Dates: start: 2012, end: 2012
  2. VIMPAT [Suspect]
     Indication: EPILEPSY
     Dosage: 50 MG FOR TWO WEEKS.
     Route: 048
     Dates: start: 201202, end: 2012
  3. LAMOTRIGINE [Suspect]
     Indication: EPILEPSY
     Dosage: DOSE REDUCED
     Route: 048
     Dates: start: 2012
  4. LAMOTRIGINE [Suspect]
     Indication: EPILEPSY
     Dosage: TOTAL DAILY DOSE : 100 MG
     Route: 048
     Dates: start: 2006, end: 2012
  5. LEVETIRACETAM [Concomitant]
     Indication: EPILEPSY
     Dosage: AT LEAST FOR TWO YEARS
     Route: 048
  6. SODIUM VALPROATE [Concomitant]
     Indication: EPILEPSY
     Route: 048
  7. ATORVASTATINUM [Concomitant]
     Indication: DYSLIPIDAEMIA
     Route: 048
  8. PENTOXIFILLINE EXTENDED RELEASE [Concomitant]
     Indication: DIABETIC VASCULAR DISORDER
     Route: 048

REACTIONS (2)
  - Epilepsy [Recovered/Resolved]
  - Rib fracture [Recovering/Resolving]
